FAERS Safety Report 10580497 (Version 2)
Quarter: 2014Q4

REPORT INFORMATION
  Report Type: Spontaneous
  Country: IT (occurrence: IT)
  Receive Date: 20141113
  Receipt Date: 20141113
  Transmission Date: 20150529
  Serious: Yes (Other)
  Sender: FDA-Public Use
  Company Number: IT-009507513-1410ITA005887

PATIENT
  Age: 80 Year
  Sex: Female

DRUGS (1)
  1. FOSAVANCE [Suspect]
     Active Substance: ALENDRONATE SODIUM\CHOLECALCIFEROL
     Indication: OSTEOPOROSIS
     Dosage: 70 MG, QW
     Route: 048
     Dates: start: 20130101, end: 20130401

REACTIONS (2)
  - Osteonecrosis of jaw [Unknown]
  - Oral cavity fistula [Unknown]

NARRATIVE: CASE EVENT DATE: 20140401
